FAERS Safety Report 10086486 (Version 1)
Quarter: 2014Q2

REPORT INFORMATION
  Report Type: Spontaneous
  Country: US (occurrence: US)
  Receive Date: 20140418
  Receipt Date: 20140418
  Transmission Date: 20141212
  Serious: Yes (Hospitalization, Other)
  Sender: FDA-Public Use
  Company Number: US-FRI-1000066404

PATIENT
  Age: 85 Year
  Sex: Female

DRUGS (8)
  1. NAMENDA [Suspect]
     Indication: DEMENTIA
     Dosage: 5MG
     Route: 048
     Dates: start: 2013
  2. NAMENDA [Suspect]
     Indication: DEMENTIA ALZHEIMER^S TYPE
  3. LISINOPRIL [Concomitant]
  4. CALCIUM [Concomitant]
  5. AMITIZA [Concomitant]
     Indication: CONSTIPATION
  6. TIMOLOL [Concomitant]
     Indication: GLAUCOMA
  7. PRAVASTATIN SODIUM [Concomitant]
  8. DONEPEZIL [Concomitant]

REACTIONS (10)
  - Constipation [Unknown]
  - Weight decreased [Recovered/Resolved]
  - Colon cancer [Unknown]
  - Major depression [Unknown]
  - Faeces hard [Not Recovered/Not Resolved]
  - Fall [Unknown]
  - Contusion [Unknown]
  - Head discomfort [Unknown]
  - Spinal pain [Unknown]
  - Abnormal behaviour [Unknown]
